FAERS Safety Report 7554614-0 (Version None)
Quarter: 2011Q2

REPORT INFORMATION
  Report Type: 
  Country: None (occurrence: None)
  Receive Date: 20110617
  Receipt Date: 20110610
  Transmission Date: 20111010
  Serious: Yes (Hospitalization, Other)
  Sender: FDA-Public Use
  Company Number: US-ABBOTT-11P-163-0731998-00

PATIENT
  Sex: Female
  Weight: 86.26 kg

DRUGS (13)
  1. HUMIRA [Suspect]
     Indication: PSORIATIC ARTHROPATHY
     Route: 058
     Dates: start: 20090101, end: 20110318
  2. STROVITE ADVANCE VITAMIN [Concomitant]
     Indication: PRODUCT USED FOR UNKNOWN INDICATION
  3. HUMIRA [Suspect]
     Indication: RHEUMATOID ARTHRITIS
     Route: 058
     Dates: start: 20110527
  4. REMERON [Concomitant]
     Indication: PRODUCT USED FOR UNKNOWN INDICATION
     Dosage: 30MG DAILY
  5. WELLBUTRIN [Concomitant]
     Indication: DEPRESSION
     Dosage: 150MG DAILY
  6. PRISTIQ [Concomitant]
     Indication: PRODUCT USED FOR UNKNOWN INDICATION
     Dosage: 100MG DAILY
  7. CLONEZEPAM [Concomitant]
     Indication: ANXIETY
     Dosage: ONE HALF TO 2 TABLETS 1-4 TIMES DAILY
  8. CALCIUM WITH VITAMIN D [Concomitant]
     Indication: MINERAL SUPPLEMENTATION
  9. OXYCODONE HCL [Concomitant]
     Indication: BACK PAIN
     Dosage: 10/325 MG UP TO 4 A DAY AS NEEDED
  10. FLEXERIL [Concomitant]
     Indication: MUSCLE SPASMS
  11. ZEGRID [Concomitant]
     Indication: GASTROOESOPHAGEAL REFLUX DISEASE
  12. METHOTREXATE [Concomitant]
     Indication: RHEUMATOID ARTHRITIS
  13. METHOTREXATE [Concomitant]
     Indication: PSORIATIC ARTHROPATHY

REACTIONS (7)
  - BRONCHOPNEUMONIA [None]
  - PARAESTHESIA [None]
  - ROAD TRAFFIC ACCIDENT [None]
  - RHEUMATOID ARTHRITIS [None]
  - CARPAL TUNNEL SYNDROME [None]
  - PSORIATIC ARTHROPATHY [None]
  - BACK PAIN [None]
